FAERS Safety Report 11636343 (Version 1)
Quarter: 2015Q4

REPORT INFORMATION
  Report Type: Spontaneous
  Country: US (occurrence: US)
  Receive Date: 20151016
  Receipt Date: 20151016
  Transmission Date: 20160304
  Serious: No
  Sender: FDA-Public Use
  Company Number: US-ASTRAZENECA-2015SE96412

PATIENT
  Age: 21987 Day
  Sex: Female
  Weight: 64.9 kg

DRUGS (11)
  1. MAGNESIUM [Concomitant]
     Active Substance: MAGNESIUM
  2. JANUMET [Concomitant]
     Active Substance: METFORMIN HYDROCHLORIDE\SITAGLIPTIN PHOSPHATE
  3. OMEGA 3 6 9 [Concomitant]
     Active Substance: FISH OIL
  4. VITAMIN E [Concomitant]
     Active Substance: .ALPHA.-TOCOPHEROL
  5. FARXIGA [Suspect]
     Active Substance: DAPAGLIFLOZIN PROPANEDIOL
     Indication: DIABETES MELLITUS
     Route: 048
  6. POLYETHYLINE GLYCOL [Concomitant]
  7. NEXIUM [Suspect]
     Active Substance: ESOMEPRAZOLE MAGNESIUM
     Route: 048
  8. ZINC [Concomitant]
     Active Substance: ZINC\ZINC CHLORIDE
  9. LOMITAPIDE [Suspect]
     Active Substance: LOMITAPIDE MESYLATE
     Indication: TYPE IIA HYPERLIPIDAEMIA
     Dosage: 10 MG, DAILY, NON AZ PRODUCT
     Route: 048
     Dates: start: 20141111, end: 20150204
  10. LOMITAPIDE [Suspect]
     Active Substance: LOMITAPIDE MESYLATE
     Indication: TYPE IIA HYPERLIPIDAEMIA
     Dosage: 5 MG, DAILY,NON AZ PRODUCT
     Route: 048
     Dates: start: 20140929, end: 20141110
  11. NASONEX [Concomitant]
     Active Substance: MOMETASONE FUROATE

REACTIONS (3)
  - High density lipoprotein increased [Not Recovered/Not Resolved]
  - Low density lipoprotein increased [Not Recovered/Not Resolved]
  - Blood cholesterol increased [Not Recovered/Not Resolved]

NARRATIVE: CASE EVENT DATE: 20141030
